FAERS Safety Report 4668968-6 (Version None)
Quarter: 2005Q2

REPORT INFORMATION
  Report Type: 
  Country: None (occurrence: None)
  Receive Date: 20050523
  Receipt Date: 20041203
  Transmission Date: 20051028
  Serious: Yes (Other)
  Sender: FDA-Public Use
  Company Number: GB-GLAXOSMITHKLINE-B0360654A

PATIENT
  Sex: Female

DRUGS (2)
  1. PAROXETINE HYDROCHLORIDE [Suspect]
     Route: 065
  2. MOTILIUM [Concomitant]
     Route: 065

REACTIONS (8)
  - ABORTION INDUCED [None]
  - ASTHENIA [None]
  - DRUG EXPOSURE DURING PREGNANCY [None]
  - DRUG WITHDRAWAL SYNDROME [None]
  - FEELING ABNORMAL [None]
  - HYPEREMESIS GRAVIDARUM [None]
  - MALAISE [None]
  - PREGNANCY [None]
